FAERS Safety Report 4370719-X (Version None)
Quarter: 2004Q2

REPORT INFORMATION
  Report Type: 
  Country: None (occurrence: None)
  Receive Date: 20040601
  Receipt Date: 20040525
  Transmission Date: 20050107
  Serious: Yes (Disabling, Other)
  Sender: FDA-Public Use
  Company Number: GBWYE769518MAY04

PATIENT
  Age: 60 Year
  Sex: Male

DRUGS (2)
  1. EFFEXOR XR [Suspect]
     Dosage: 75 MG 1X PER 1 DAY ORAL
     Route: 048
     Dates: start: 20020824, end: 20021003
  2. PAROXETINE HCL [Concomitant]

REACTIONS (3)
  - DRUG ERUPTION [None]
  - HAEMORRHAGE SUBCUTANEOUS [None]
  - PSORIASIS [None]
